FAERS Safety Report 7465011-0 (Version None)
Quarter: 2011Q2

REPORT INFORMATION
  Report Type: 
  Country: None (occurrence: None)
  Receive Date: 20110509
  Receipt Date: 20110401
  Transmission Date: 20111010
  Serious: Yes (Hospitalization, Other)
  Sender: FDA-Public Use
  Company Number: US-BAYER-201010409NA

PATIENT
  Age: 18 Year
  Sex: Female
  Weight: 52.154 kg

DRUGS (15)
  1. NESTAB [Concomitant]
  2. FLOVENT [Concomitant]
  3. YAZ [Suspect]
     Indication: PRODUCT USED FOR UNKNOWN INDICATION
     Dates: start: 20080601, end: 20081201
  4. UNCODEABLE ^UNCLASSIFIABLE^ [Concomitant]
  5. ACETAMINOPHEN [Concomitant]
  6. CEPHALEXIN [Concomitant]
     Dosage: 500 MG, UNK
     Dates: start: 20081106
  7. PAXIL [Concomitant]
  8. FERROUS SULFATE TAB [Concomitant]
  9. CLARINEX [Concomitant]
  10. HYDROCODONE [HYDROCODONE] [Concomitant]
  11. ALBUTEROL [Concomitant]
     Indication: ASTHMA
     Dosage: UNK
     Dates: start: 20010101
  12. PROMETHAZINE [Concomitant]
  13. HYDROCODONE BITARTRATE AND ACETAMINOPHEN [Concomitant]
     Dosage: 500 MG, UNK
  14. PROMETHAZINE [Concomitant]
     Dosage: 50 MG, UNK
     Dates: start: 20081008
  15. CEPHALEXIN [Concomitant]

REACTIONS (4)
  - VAGINAL DISCHARGE [None]
  - ORGAN FAILURE [None]
  - CHOLECYSTITIS [None]
  - GALLBLADDER DISORDER [None]
